FAERS Safety Report 7389259-9 (Version None)
Quarter: 2011Q2

REPORT INFORMATION
  Report Type: 
  Country: None (occurrence: None)
  Receive Date: 20110401
  Receipt Date: 20100401
  Transmission Date: 20111010
  Serious: Yes (Life-Threatening, Hospitalization)
  Sender: FDA-Public Use
  Company Number: IT-BAYER-2010-006663

PATIENT
  Sex: Male

DRUGS (6)
  1. MODURETIC 5-50 [Concomitant]
  2. METFORMIN HCL [Concomitant]
  3. ACETYLSALICYLIC ACID SRT [Suspect]
     Indication: DIABETIC VASCULAR DISORDER
     Dosage: 100 MG, QD
     Route: 048
     Dates: start: 20090101, end: 20101020
  4. ZYLORIC [Concomitant]
  5. ESKIM [Concomitant]
  6. ATORVASTATIN CALCIUM [Concomitant]

REACTIONS (3)
  - HAEMORRHAGE [None]
  - DUODENAL ULCER [None]
  - ANAEMIA [None]
